FAERS Safety Report 9962377 (Version 1)
Quarter: 2014Q1

REPORT INFORMATION
  Report Type: Report from Study
  Country: US (occurrence: US)
  Receive Date: 20140305
  Receipt Date: 20140305
  Transmission Date: 20141002
  Serious: No
  Sender: FDA-Public Use
  Company Number: US-ABBVIE-13P-163-1115302-00

PATIENT
  Age: 46 Year
  Sex: Male
  Weight: 100.79 kg

DRUGS (4)
  1. HUMIRA [Suspect]
     Indication: CROHN^S DISEASE
     Route: 058
     Dates: start: 20130130, end: 201307
  2. HUMIRA [Suspect]
     Indication: COLITIS ULCERATIVE
     Dosage: FREQUENCY WAS UNKNOWN
     Route: 058
     Dates: start: 201307
  3. PREDNISONE [Concomitant]
     Indication: COLITIS ULCERATIVE
     Route: 048
     Dates: start: 201306
  4. OMEPRAZOLE [Concomitant]
     Indication: GASTROOESOPHAGEAL REFLUX DISEASE
     Route: 048

REACTIONS (4)
  - Haematochezia [Recovering/Resolving]
  - Diarrhoea [Recovering/Resolving]
  - Colitis ulcerative [Recovering/Resolving]
  - Drug effect incomplete [Not Recovered/Not Resolved]
